FAERS Safety Report 11575501 (Version 2)
Quarter: 2015Q4

REPORT INFORMATION
  Report Type: Report from Study
  Country: BE (occurrence: BE)
  Receive Date: 20150930
  Receipt Date: 20151104
  Transmission Date: 20160304
  Serious: Yes (Hospitalization)
  Sender: FDA-Public Use
  Company Number: BE-BIOGENIDEC-2015BI128740

PATIENT
  Age: 54 Year
  Sex: Female

DRUGS (1)
  1. TYSABRI [Suspect]
     Active Substance: NATALIZUMAB
     Indication: RELAPSING-REMITTING MULTIPLE SCLEROSIS
     Route: 042
     Dates: start: 20130801

REACTIONS (3)
  - Calculus urinary [Recovered/Resolved]
  - Pyelonephritis [Recovered/Resolved]
  - Infectious colitis [Recovered/Resolved]

NARRATIVE: CASE EVENT DATE: 20150806
